FAERS Safety Report 14889433 (Version 1)
Quarter: 2018Q2

REPORT INFORMATION
  Report Type: Spontaneous
  Country: FR (occurrence: FR)
  Receive Date: 20180514
  Receipt Date: 20180514
  Transmission Date: 20180711
  Serious: Yes (Other)
  Sender: FDA-Public Use
  Company Number: FR-MERCK KGAA-2047675

PATIENT
  Age: 32 Year
  Sex: Female
  Weight: 90 kg

DRUGS (2)
  1. NOVOTHYROX [Suspect]
     Active Substance: LEVOTHYROXINE SODIUM
     Indication: AUTOIMMUNE HYPOTHYROIDISM
     Route: 048
  2. LEVOTHYROXINE SODIUM. [Suspect]
     Active Substance: LEVOTHYROXINE SODIUM
     Route: 048
     Dates: end: 201711

REACTIONS (28)
  - Tinnitus [Recovered/Resolved]
  - Muscle spasms [Recovered/Resolved]
  - Dizziness [Recovered/Resolved]
  - Fatigue [Recovered/Resolved]
  - Hypothyroidism [Recovered/Resolved]
  - Visual field defect [Recovered/Resolved]
  - Chest discomfort [Recovered/Resolved]
  - Asthenia [Recovered/Resolved]
  - Depressed mood [Recovered/Resolved]
  - Disturbance in attention [Recovered/Resolved]
  - Feeling abnormal [Recovered/Resolved]
  - Emotional distress [Recovered/Resolved]
  - Chest pain [Recovered/Resolved]
  - Partner stress [Recovered/Resolved]
  - Social avoidant behaviour [Recovered/Resolved]
  - Alopecia [Not Recovered/Not Resolved]
  - Headache [Recovered/Resolved]
  - Loss of personal independence in daily activities [Recovered/Resolved]
  - Insomnia [Recovered/Resolved]
  - Impaired work ability [Recovered/Resolved]
  - Vertigo [None]
  - Heart rate increased [Recovered/Resolved]
  - Decreased interest [Recovered/Resolved]
  - Malaise [Recovered/Resolved]
  - Morose [Recovered/Resolved]
  - Depression [Recovered/Resolved]
  - Impaired driving ability [Recovered/Resolved]
  - Depressed mood [None]

NARRATIVE: CASE EVENT DATE: 201707
